FAERS Safety Report 13002469 (Version 1)
Quarter: 2016Q4

REPORT INFORMATION
  Report Type: Spontaneous
  Country: TR (occurrence: TR)
  Receive Date: 20161206
  Receipt Date: 20161206
  Transmission Date: 20170207
  Serious: Yes (Other)
  Sender: FDA-Public Use
  Company Number: TR-ASTELLAS-2016US047189

PATIENT
  Sex: Female
  Weight: 60 kg

DRUGS (2)
  1. VESICARE [Suspect]
     Active Substance: SOLIFENACIN SUCCINATE
     Indication: BLADDER DISORDER
  2. VESICARE [Suspect]
     Active Substance: SOLIFENACIN SUCCINATE
     Indication: URINARY INCONTINENCE
     Route: 048

REACTIONS (6)
  - Bladder dilatation [Unknown]
  - Headache [Unknown]
  - Dizziness [Unknown]
  - Urinary incontinence [Unknown]
  - Dysuria [Unknown]
  - Vision blurred [Unknown]
